FAERS Safety Report 8020394-8 (Version None)
Quarter: 2012Q1

REPORT INFORMATION
  Report Type: 
  Country: None (occurrence: None)
  Receive Date: 20120103
  Receipt Date: 20111222
  Transmission Date: 20120608
  Serious: Yes (Other)
  Sender: FDA-Public Use
  Company Number: US-ELI_LILLY_AND_COMPANY-US201112007402

PATIENT
  Sex: Female

DRUGS (17)
  1. PREDNISONE TAB [Concomitant]
     Dosage: 7.5 MG, UNK
  2. LEVOTHYROXINE SODIUM [Concomitant]
     Dosage: 75 MG, UNK
  3. POTASSIUM CHLORIDE [Concomitant]
     Dosage: 10 UG, UNK
  4. GLUCOSAMINE W/CHONDROITIN [Concomitant]
  5. MAGNESIUM [Concomitant]
     Dosage: 1000 MG, UNK
  6. MILNACIPRAN HYDROCHLORIDE [Concomitant]
     Dosage: 50 MG, UNK
  7. FORTEO [Suspect]
     Indication: OSTEOPOROSIS
     Dosage: 20 UG, QD
     Dates: start: 20111203
  8. CALCIUM ACETATE [Concomitant]
     Dosage: 1200 MG, UNK
  9. SPIRONOLACTONE [Concomitant]
     Dosage: 50 MG, UNK
  10. KEPPRA [Concomitant]
     Dosage: 1250 MG, UNK
  11. SYMBICORT [Concomitant]
     Dosage: UNK, UNKNOWN
  12. VITAMIN D [Concomitant]
     Dosage: 4000 IU, QD
  13. BISACODYL [Concomitant]
     Dosage: 50 MG, UNK
  14. BUMETANIDE [Concomitant]
     Dosage: 2 MG, UNK
  15. METOLAZONE [Concomitant]
     Dosage: 2.5 MG, UNK
  16. GABAPENTIN [Concomitant]
     Dosage: 900 MG, UNK
  17. DOCUSATE SODIUM [Concomitant]
     Dosage: 50 MG, UNK

REACTIONS (5)
  - SYSTEMIC LUPUS ERYTHEMATOSUS [None]
  - FIBROMYALGIA [None]
  - FATIGUE [None]
  - CONVULSION [None]
  - RAYNAUD'S PHENOMENON [None]
